FAERS Safety Report 20950308 (Version 1)
Quarter: 2022Q2

REPORT INFORMATION
  Report Type: Spontaneous
  Country: US (occurrence: US)
  Receive Date: 20220613
  Receipt Date: 20220613
  Transmission Date: 20220720
  Serious: Yes (Life-Threatening)
  Sender: FDA-Public Use
  Company Number: US-drreddys-LIT/USA/22/0150981

PATIENT
  Age: 62 Year
  Sex: Male

DRUGS (5)
  1. MINOCYCLINE HYDROCHLORIDE [Suspect]
     Active Substance: MINOCYCLINE HYDROCHLORIDE
     Indication: Klebsiella infection
     Dosage: REMAINED UNDER PHAGE THERAPY FOR 8 MONTHS WAS MAINTAINED
     Route: 048
  2. DAPTOMYCIN [Suspect]
     Active Substance: DAPTOMYCIN
     Indication: Product used for unknown indication
  3. PENICILLIN V POTASSIUM [Suspect]
     Active Substance: PENICILLIN V POTASSIUM
     Indication: Product used for unknown indication
     Route: 048
  4. RIFAMPIN [Concomitant]
     Active Substance: RIFAMPIN
     Indication: Product used for unknown indication
  5. VANCOMYCIN [Concomitant]
     Active Substance: VANCOMYCIN
     Indication: Product used for unknown indication

REACTIONS (5)
  - Drug ineffective [Unknown]
  - Pain [Unknown]
  - Eosinophilia [Unknown]
  - Swelling [Unknown]
  - Erythema [Unknown]
